FAERS Safety Report 7607684-5 (Version None)
Quarter: 2011Q3

REPORT INFORMATION
  Report Type: 
  Country: None (occurrence: None)
  Receive Date: 20110713
  Receipt Date: 20110512
  Transmission Date: 20111222
  Serious: Yes (Other)
  Sender: FDA-Public Use
  Company Number: PHHY2011AU40974

PATIENT
  Sex: Male

DRUGS (1)
  1. EXFORGE [Suspect]
     Dosage: 10/60 MG, UNK

REACTIONS (2)
  - DRUG INEFFECTIVE [None]
  - HYPERTENSION [None]
